FAERS Safety Report 7486524-1 (Version None)
Quarter: 2011Q2

REPORT INFORMATION
  Report Type: 
  Country: None (occurrence: None)
  Receive Date: 20110517
  Receipt Date: 20110504
  Transmission Date: 20111010
  Serious: Yes (Other)
  Sender: FDA-Public Use
  Company Number: US-UCBSA-032343

PATIENT
  Sex: Female

DRUGS (4)
  1. CIMZIA [Suspect]
     Route: 058
     Dates: start: 20110201, end: 20110101
  2. RELAFEN [Concomitant]
     Dates: end: 20110101
  3. RELAFEN [Concomitant]
     Dates: start: 20110101
  4. PLAQUENIL [Concomitant]
     Dates: start: 20110101, end: 20110101

REACTIONS (4)
  - URTICARIA [None]
  - FOLLICULITIS [None]
  - PRURITUS [None]
  - RASH [None]
